FAERS Safety Report 8389070-6 (Version None)
Quarter: 2012Q2

REPORT INFORMATION
  Report Type: 
  Country: None (occurrence: None)
  Receive Date: 20120528
  Receipt Date: 20120521
  Transmission Date: 20120825
  Serious: Yes (Hospitalization, Other)
  Sender: FDA-Public Use
  Company Number: PHHY2012MX038330

PATIENT
  Sex: Male

DRUGS (5)
  1. THEOPHYLLINE [Concomitant]
     Dosage: 1 DF, UNK
     Dates: start: 20110301
  2. VALPROATE MAGNESIUM (ATEMPERATOR LP) [Concomitant]
     Indication: NERVOUS SYSTEM DISORDER
     Dosage: 2 DF, UNK
     Dates: start: 20110601
  3. ONBREZ [Suspect]
     Indication: CHRONIC OBSTRUCTIVE PULMONARY DISEASE
     Dosage: 1 DF, UNK
     Dates: start: 20110501
  4. SPIRIVA [Suspect]
     Indication: CHRONIC OBSTRUCTIVE PULMONARY DISEASE
     Dosage: 1 DF, QD
     Dates: start: 20110601
  5. SINTROM [Concomitant]
     Dates: start: 20060101

REACTIONS (4)
  - GAIT DISTURBANCE [None]
  - CEREBROVASCULAR ACCIDENT [None]
  - SPEECH DISORDER [None]
  - EMPYEMA [None]
